FAERS Safety Report 10037227 (Version 2)
Quarter: 2014Q3

REPORT INFORMATION
  Report Type: Spontaneous
  Country: SA (occurrence: SA)
  Receive Date: 20140326
  Receipt Date: 20140716
  Transmission Date: 20150326
  Serious: Yes (Hospitalization)
  Sender: FDA-Public Use
  Company Number: PHHY2014SA035209

PATIENT
  Age: 51 Year
  Sex: Female
  Weight: 113 kg

DRUGS (2)
  1. EXEMESTANE. [Concomitant]
     Active Substance: EXEMESTANE
     Indication: BREAST CANCER
     Dosage: 25 MG, DAILY
     Dates: start: 201401, end: 201403
  2. EVEROLIMUS [Suspect]
     Active Substance: EVEROLIMUS
     Indication: BREAST CANCER
     Dosage: 10 MG, UNK
     Route: 048
     Dates: start: 201401, end: 201403

REACTIONS (5)
  - Cough [Unknown]
  - Rash maculo-papular [Unknown]
  - Hypotension [Unknown]
  - Pyrexia [Unknown]
  - Pneumonitis [Unknown]
